FAERS Safety Report 7644725-3 (Version None)
Quarter: 2011Q3

REPORT INFORMATION
  Report Type: 
  Country: None (occurrence: None)
  Receive Date: 20110729
  Receipt Date: 20110726
  Transmission Date: 20111222
  Serious: Yes (Hospitalization)
  Sender: FDA-Public Use
  Company Number: US-ACTELION-A-US2011-52071

PATIENT

DRUGS (3)
  1. TRACLEER [Suspect]
     Indication: PULMONARY ARTERIAL HYPERTENSION
     Dosage: 62.5 MG, OD
     Route: 048
     Dates: start: 20110519, end: 20110722
  2. REVATIO [Concomitant]
  3. TRACLEER [Suspect]
     Dosage: 31.25 MG, OD
     Route: 048
     Dates: start: 20110723

REACTIONS (2)
  - LUNG DISORDER [None]
  - BRONCHITIS [None]
